FAERS Safety Report 25459891 (Version 1)
Quarter: 2025Q2

REPORT INFORMATION
  Report Type: Spontaneous
  Country: JP (occurrence: JP)
  Receive Date: 20250620
  Receipt Date: 20250620
  Transmission Date: 20250717
  Serious: Yes (Other)
  Sender: RECORDATI
  Company Number: JP-RECORDATI RARE DISEASE INC.-2025004251

PATIENT
  Age: 80 Year
  Sex: Female

DRUGS (1)
  1. ENJAYMO [Suspect]
     Active Substance: SUTIMLIMAB-JOME
     Indication: Product used for unknown indication
     Route: 065

REACTIONS (1)
  - Gastric cancer [Not Recovered/Not Resolved]
